FAERS Safety Report 5272372-X (Version None)
Quarter: 2007Q1

REPORT INFORMATION
  Report Type: 
  Country: None (occurrence: None)
  Receive Date: 20061214
  Receipt Date: 20060727
  Transmission Date: 20070707
  Serious: Yes (Hospitalization, Other)
  Sender: FDA-Public Use
  Company Number: 2006094160

PATIENT
  Age: 71 Year
  Sex: Female
  Weight: 132.9039 kg

DRUGS (1)
  1. BEXTRA [Suspect]
     Indication: ARTHRITIS
     Dosage: 20 MG (20 MG, 1IN 1 D)

REACTIONS (1)
  - ARRHYTHMIA [None]
